FAERS Safety Report 16265095 (Version 1)
Quarter: 2019Q2

REPORT INFORMATION
  Report Type: Spontaneous
  Country: CA (occurrence: CA)
  Receive Date: 20190502
  Receipt Date: 20190502
  Transmission Date: 20190711
  Serious: Yes (Death, Other)
  Sender: FDA-Public Use
  Company Number: CA-PFIZER INC-2019187645

PATIENT
  Age: 59 Year
  Sex: Male

DRUGS (8)
  1. VENTOLIN [Concomitant]
     Active Substance: ALBUTEROL SULFATE
     Dosage: UNK
  2. LORBRENA [Suspect]
     Active Substance: LORLATINIB
     Dosage: 100 MG, UNK
  3. DILAUDID [Concomitant]
     Active Substance: HYDROMORPHONE HYDROCHLORIDE
     Dosage: UNK
  4. RELAXA [ACETYLSALICYLIC ACID;ALUMINIUM HYDROXIDE;CODEINE;PARACETAMOL] [Concomitant]
     Dosage: UNK
  5. SENOKOT [Concomitant]
     Active Substance: SENNOSIDES
     Dosage: UNK
  6. METFORMIN [Concomitant]
     Active Substance: METFORMIN HYDROCHLORIDE
     Dosage: UNK
  7. TRIMETHOPRIM SULFAMETHOXAZOLE [Concomitant]
     Active Substance: SULFAMETHOXAZOLE\TRIMETHOPRIM
     Indication: PROPHYLAXIS
     Dosage: UNK
  8. ATIVAN [Concomitant]
     Active Substance: LORAZEPAM

REACTIONS (1)
  - Death [Fatal]
